FAERS Safety Report 25622227 (Version 1)
Quarter: 2025Q3

REPORT INFORMATION
  Report Type: Spontaneous
  Country: CN (occurrence: CN)
  Receive Date: 20250730
  Receipt Date: 20250730
  Transmission Date: 20251021
  Serious: Yes (Hospitalization, Other)
  Sender: ASTELLAS
  Company Number: CN-ASTELLAS-2025-AER-040709

PATIENT
  Age: 59 Year
  Sex: Male

DRUGS (12)
  1. TACROLIMUS [Interacting]
     Active Substance: TACROLIMUS
     Indication: Renal transplant
     Dosage: 2.0 MG IN THE MORNING AND 1.5 MG IN THE EVENING
     Route: 048
  2. TACROLIMUS [Interacting]
     Active Substance: TACROLIMUS
     Route: 048
  3. TACROLIMUS [Interacting]
     Active Substance: TACROLIMUS
     Route: 048
  4. TACROLIMUS [Interacting]
     Active Substance: TACROLIMUS
     Dosage: EVERY OTHER DAY (QOD)
     Route: 048
  5. TACROLIMUS [Interacting]
     Active Substance: TACROLIMUS
     Route: 048
  6. MICAFUNGIN [Suspect]
     Active Substance: MICAFUNGIN SODIUM
     Indication: Antifungal prophylaxis
     Dosage: IVGTT (INTRAVENOUS GLUCOSE TOLERANCE TEST)
     Route: 042
  7. VORICONAZOLE [Interacting]
     Active Substance: VORICONAZOLE
     Indication: Antifungal treatment
     Dosage: MAINTENANCE DOSE
     Route: 065
  8. VORICONAZOLE [Interacting]
     Active Substance: VORICONAZOLE
     Indication: Evidence based treatment
     Dosage: ON DAY 1
     Route: 065
  9. PAXLOVID [Interacting]
     Active Substance: NIRMATRELVIR\RITONAVIR
     Indication: COVID-19
     Dosage: NIRMATRELVIR 150 MG PLUS RITONAVIR 100 MG
     Route: 048
  10. PREDNISONE ACETATE [Suspect]
     Active Substance: PREDNISONE ACETATE
     Indication: Renal transplant
     Route: 065
  11. MYCOPHENOLATE MOFETIL [Suspect]
     Active Substance: MYCOPHENOLATE MOFETIL
     Indication: Renal transplant
     Route: 065
  12. MYCOPHENOLATE MOFETIL [Suspect]
     Active Substance: MYCOPHENOLATE MOFETIL
     Route: 065

REACTIONS (10)
  - Bronchopulmonary aspergillosis [Recovering/Resolving]
  - COVID-19 pneumonia [Recovered/Resolved]
  - Infection [Recovered/Resolved]
  - Nephropathy toxic [Recovering/Resolving]
  - Toxicity to various agents [Recovering/Resolving]
  - Renal impairment [Recovering/Resolving]
  - Acute kidney injury [Recovering/Resolving]
  - Drug interaction [Unknown]
  - Drug interaction [Unknown]
  - Off label use [Unknown]
